FAERS Safety Report 13296975 (Version 2)
Quarter: 2017Q1

REPORT INFORMATION
  Report Type: Spontaneous
  Country: US (occurrence: US)
  Receive Date: 20170306
  Receipt Date: 20170322
  Transmission Date: 20170428
  Serious: Yes (Other)
  Sender: FDA-Public Use
  Company Number: US-ELI_LILLY_AND_COMPANY-US201608003891

PATIENT
  Sex: Female

DRUGS (5)
  1. BENTYL [Concomitant]
     Active Substance: DICYCLOMINE HYDROCHLORIDE
     Dosage: UNK, BID
     Route: 065
  2. CYMBALTA [Suspect]
     Active Substance: DULOXETINE HYDROCHLORIDE
     Indication: FIBROMYALGIA
     Dosage: UNK, UNKNOWN
     Route: 065
  3. ENDOCET [Concomitant]
     Active Substance: ACETAMINOPHEN\OXYCODONE HYDROCHLORIDE
     Dosage: UNK, OTHER
     Route: 065
  4. FLOVENT HFA [Concomitant]
     Active Substance: FLUTICASONE PROPIONATE
     Dosage: UNK, QD
     Route: 065
  5. PROGESTERONE. [Concomitant]
     Active Substance: PROGESTERONE
     Dosage: UNK, QD
     Route: 065

REACTIONS (22)
  - Affect lability [Unknown]
  - Hypomania [Unknown]
  - Paraesthesia [Unknown]
  - Nausea [Unknown]
  - Fatigue [Unknown]
  - Irritability [Unknown]
  - Confusional state [Unknown]
  - Tremor [Unknown]
  - Anxiety [Unknown]
  - Sensory disturbance [Unknown]
  - Vomiting [Unknown]
  - Suicidal ideation [Unknown]
  - Vertigo [Unknown]
  - Hyperhidrosis [Unknown]
  - Dizziness [Unknown]
  - Tinnitus [Unknown]
  - Seizure [Unknown]
  - Lethargy [Unknown]
  - Drug withdrawal syndrome [Unknown]
  - Headache [Unknown]
  - Diarrhoea [Unknown]
  - Insomnia [Unknown]
